FAERS Safety Report 12519402 (Version 2)
Quarter: 2016Q3

REPORT INFORMATION
  Report Type: Spontaneous
  Country: TW (occurrence: TW)
  Receive Date: 20160630
  Receipt Date: 20160719
  Transmission Date: 20161109
  Serious: Yes (Hospitalization, Other)
  Sender: FDA-Public Use
  Company Number: TW-SA-2016SA113544

PATIENT
  Age: 50 Year
  Sex: Female

DRUGS (5)
  1. DOCETAXEL. [Suspect]
     Active Substance: DOCETAXEL
     Indication: NASOPHARYNGEAL CANCER STAGE I
     Dosage: SINGLE 1 H INFUSION ON DAY 1
     Route: 065
  2. FLUOROURACIL. [Suspect]
     Active Substance: FLUOROURACIL
     Indication: NASOPHARYNGEAL CANCER STAGE I
     Dosage: CONTIONOUS PUMP FROM DAY 1 -4
     Route: 065
  3. CISPLATIN. [Suspect]
     Active Substance: CISPLATIN
     Indication: NASOPHARYNGEAL CANCER STAGE I
     Dosage: ON DAY 1, SINGLE 6-H INFUSION
     Route: 065
  4. CISPLATIN. [Suspect]
     Active Substance: CISPLATIN
     Indication: NASOPHARYNGEAL CANCER STAGE I
     Dosage: ON DAY 1, SINGLE 6-H INFUSION
     Route: 065
  5. FLUOROURACIL. [Suspect]
     Active Substance: FLUOROURACIL
     Indication: NASOPHARYNGEAL CANCER STAGE I
     Dosage: CONTIONOUS PUMP FROM DAY 1 -4
     Route: 065

REACTIONS (5)
  - Febrile neutropenia [Recovering/Resolving]
  - Osmotic demyelination syndrome [Recovering/Resolving]
  - Hyponatraemia [Recovered/Resolved]
  - Irritability [Recovered/Resolved]
  - Dizziness [Recovered/Resolved]

NARRATIVE: CASE EVENT DATE: 20140605
